FAERS Safety Report 10213799 (Version 2)
Quarter: 2014Q3

REPORT INFORMATION
  Report Type: Spontaneous
  Country: DE (occurrence: None)
  Receive Date: 20140529
  Receipt Date: 20140728
  Transmission Date: 20150326
  Serious: Yes (Other)
  Sender: FDA-Public Use
  Company Number: SYM-2014-20923

PATIENT
  Age: 75 Year
  Sex: Female
  Weight: 75 kg

DRUGS (6)
  1. BUDESONIDE. [Suspect]
     Active Substance: BUDESONIDE
     Indication: PRODUCT USED FOR UNKNOWN INDICATION
  2. SPIRO-CT (SPIRONOLACTONE) [Concomitant]
  3. BISOPROLOL (BISOPROLOL) [Concomitant]
     Active Substance: BISOPROLOL
  4. ZYCLARA [Suspect]
     Active Substance: IMIQUIMOD
     Indication: ACTINIC KERATOSIS
     Route: 061
     Dates: start: 20140304, end: 20140405
  5. VALSARTAN COMP (CO-DIOVAN) (HYDROCHLOROTHIAZIDE, VALSARTAN) [Concomitant]
  6. FORMOTEROL FUMARATE [Suspect]
     Active Substance: FORMOTEROL FUMARATE
     Indication: PRODUCT USED FOR UNKNOWN INDICATION

REACTIONS (6)
  - Application site reaction [None]
  - Oral herpes [None]
  - Malaise [None]
  - Gouty arthritis [None]
  - Eye irritation [None]
  - Lymphadenopathy [None]

NARRATIVE: CASE EVENT DATE: 20140404
